FAERS Safety Report 6676473-0 (Version None)
Quarter: 2010Q2

REPORT INFORMATION
  Report Type: 
  Country: None (occurrence: None)
  Receive Date: 20100412
  Receipt Date: 20100407
  Transmission Date: 20101027
  Serious: Yes (Death, Other)
  Sender: FDA-Public Use
  Company Number: PHEH2009US04349

PATIENT
  Sex: Female

DRUGS (3)
  1. EXJADE [Suspect]
     Indication: IRON METABOLISM DISORDER
     Dosage: 1250 MG, QD
     Route: 048
     Dates: start: 20090428, end: 20090629
  2. EXJADE [Suspect]
     Indication: IRON OVERLOAD
  3. MIRALAX [Concomitant]
     Dosage: UNK, UNK

REACTIONS (12)
  - ARTERIOSCLEROSIS [None]
  - CHRONIC OBSTRUCTIVE PULMONARY DISEASE [None]
  - CORONARY ARTERY DISEASE [None]
  - DIARRHOEA [None]
  - GASTROINTESTINAL ANGIODYSPLASIA [None]
  - HYPERLIPIDAEMIA [None]
  - HYPERTENSION [None]
  - ISCHAEMIA [None]
  - MELAENA [None]
  - PAIN [None]
  - PAINFUL RESPIRATION [None]
  - PRURITUS [None]
